FAERS Safety Report 9381862 (Version 1)
Quarter: 2013Q3

REPORT INFORMATION
  Report Type: Spontaneous
  Country: US (occurrence: US)
  Receive Date: 20130703
  Receipt Date: 20130703
  Transmission Date: 20140515
  Serious: No
  Sender: FDA-Public Use
  Company Number: US-PFIZER INC-2013194358

PATIENT
  Sex: Female

DRUGS (1)
  1. CELEBREX [Suspect]
     Dosage: UNK

REACTIONS (7)
  - Urticaria [Unknown]
  - Musculoskeletal stiffness [Unknown]
  - Dermatitis [Unknown]
  - Drug ineffective [Unknown]
  - Skin lesion [Unknown]
  - Pruritus [Unknown]
  - Drug intolerance [Unknown]
